FAERS Safety Report 5338146-6 (Version None)
Quarter: 2007Q2

REPORT INFORMATION
  Report Type: 
  Country: None (occurrence: None)
  Receive Date: 20070530
  Receipt Date: 20070522
  Transmission Date: 20071010
  Serious: Yes (Hospitalization)
  Sender: FDA-Public Use
  Company Number: PHRM2007FR01481

PATIENT
  Age: 67 Year
  Sex: Female
  Weight: 65 kg

DRUGS (5)
  1. ICAZ [Concomitant]
     Indication: HYPERTENSION
  2. AVLOCARDYL [Concomitant]
     Indication: HYPERTENSION
  3. DI-ANTALVIC [Suspect]
     Indication: PROCEDURAL PAIN
     Dosage: 4 DF/DAY
     Route: 048
     Dates: end: 20070314
  4. VOLTAREN [Suspect]
     Indication: PROCEDURAL PAIN
     Route: 048
     Dates: end: 20070314
  5. LANSOPRAZOLE [Suspect]
     Dosage: 40 MG, QD
     Route: 048
     Dates: end: 20070314

REACTIONS (10)
  - AREFLEXIA [None]
  - BALANCE DISORDER [None]
  - COMPLEMENT FACTOR INCREASED [None]
  - CSF PROTEIN INCREASED [None]
  - ELECTROMYOGRAM ABNORMAL [None]
  - GUILLAIN-BARRE SYNDROME [None]
  - HYPOAESTHESIA [None]
  - INTERVERTEBRAL DISC SPACE NARROWING [None]
  - PARAESTHESIA [None]
  - PERIPHERAL SENSORY NEUROPATHY [None]
